FAERS Safety Report 8326642-9 (Version None)
Quarter: 2012Q2

REPORT INFORMATION
  Report Type: 
  Country: None (occurrence: None)
  Receive Date: 20120501
  Receipt Date: 20120425
  Transmission Date: 20120825
  Serious: Yes (Other)
  Sender: FDA-Public Use
  Company Number: NO-PFIZER INC-2012102065

PATIENT
  Age: 25 Year
  Sex: Female

DRUGS (7)
  1. PREGABALIN [Concomitant]
     Indication: PRODUCT USED FOR UNKNOWN INDICATION
     Dosage: UNK
  2. CLONIDINE [Concomitant]
     Indication: PRODUCT USED FOR UNKNOWN INDICATION
     Dosage: UNK
  3. PALEXIA DEPOT DEPOTTABLET [Interacting]
     Indication: COMPLEX REGIONAL PAIN SYNDROME
     Dosage: 200 MG, 2/DAY
     Route: 048
     Dates: start: 20120301
  4. VENLAFAXINE HCL [Suspect]
     Indication: PRODUCT USED FOR UNKNOWN INDICATION
     Dosage: UNK
  5. PALEXIA DEPOT DEPOTTABLET [Interacting]
     Dosage: 100 MG, 2/DAY
     Route: 048
     Dates: start: 20120401
  6. OXYCODONE [Concomitant]
     Indication: PRODUCT USED FOR UNKNOWN INDICATION
     Dosage: 40 MG, 2/DAY
  7. LEVOMEPROMAZINE [Concomitant]
     Indication: PRODUCT USED FOR UNKNOWN INDICATION
     Dosage: UNK

REACTIONS (2)
  - SEROTONIN SYNDROME [None]
  - DRUG INTERACTION [None]
